FAERS Safety Report 19408288 (Version 2)
Quarter: 2021Q3

REPORT INFORMATION
  Report Type: Spontaneous
  Country: US (occurrence: US)
  Receive Date: 20210611
  Receipt Date: 20210702
  Transmission Date: 20211014
  Serious: Yes (Hospitalization)
  Sender: FDA-Public Use
  Company Number: US-ROCHE-2846173

PATIENT
  Age: 29 Year
  Sex: Male

DRUGS (2)
  1. HEMLIBRA [Suspect]
     Active Substance: EMICIZUMAB-KXWH
     Indication: FACTOR VIII DEFICIENCY
     Dosage: FORM STRENGTH: 150 MG/ML
     Route: 058
     Dates: start: 20201025
  2. HEMLIBRA [Suspect]
     Active Substance: EMICIZUMAB-KXWH
     Route: 058
     Dates: start: 20201020

REACTIONS (3)
  - Gastric haemorrhage [Unknown]
  - Small intestinal haemorrhage [Unknown]
  - Large intestinal haemorrhage [Unknown]

NARRATIVE: CASE EVENT DATE: 20210605
